FAERS Safety Report 20097238 (Version 1)
Quarter: 2021Q4

REPORT INFORMATION
  Report Type: Spontaneous
  Country: US (occurrence: US)
  Receive Date: 20211122
  Receipt Date: 20211122
  Transmission Date: 20220303
  Serious: Yes (Hospitalization)
  Sender: FDA-Public Use
  Company Number: US-SLATE RUN PHARMACEUTICALS-21US000783

PATIENT

DRUGS (1)
  1. VANCOMYCIN HYDROCHLORIDE [Suspect]
     Active Substance: VANCOMYCIN HYDROCHLORIDE
     Indication: Mastoiditis
     Dosage: UNK
     Route: 042

REACTIONS (5)
  - Antibiotic level above therapeutic [Unknown]
  - Acute kidney injury [Recovering/Resolving]
  - Rash morbilliform [Unknown]
  - Tubulointerstitial nephritis [Recovering/Resolving]
  - Nephropathy toxic [Recovering/Resolving]
